FAERS Safety Report 14338460 (Version 3)
Quarter: 2018Q2

REPORT INFORMATION
  Report Type: Spontaneous
  Country: IT (occurrence: IT)
  Receive Date: 20171229
  Receipt Date: 20180626
  Transmission Date: 20180711
  Serious: Yes (Hospitalization)
  Sender: FDA-Public Use
  Company Number: PHHY2017IT188726

PATIENT
  Age: 57 Year
  Sex: Female

DRUGS (6)
  1. METRONIDAZOLE. [Suspect]
     Active Substance: METRONIDAZOLE
     Indication: PRODUCT USED FOR UNKNOWN INDICATION
     Route: 065
  2. 5 FLUOROURACIL [Concomitant]
     Active Substance: FLUOROURACIL
     Indication: ADENOCARCINOMA OF COLON
     Dosage: 400 MG/M2, IN TWO HOURS
     Route: 040
     Dates: start: 20150812
  3. FOLINIC ACID [Suspect]
     Active Substance: LEUCOVORIN
     Indication: ADENOCARCINOMA OF COLON
     Dosage: 200 MG/M2
     Route: 065
  4. OXALIPLATIN. [Suspect]
     Active Substance: OXALIPLATIN
     Indication: ADENOCARCINOMA OF COLON
     Dosage: 85 MG/M2, QD (ON DAY1)
     Route: 065
     Dates: start: 20150812, end: 20150923
  5. CETUXIMAB. [Concomitant]
     Active Substance: CETUXIMAB
     Indication: ADENOCARCINOMA OF COLON
     Dosage: 500 MG/M2, BIW
     Route: 041
     Dates: start: 20150909
  6. 5 FLUOROURACIL [Concomitant]
     Active Substance: FLUOROURACIL
     Dosage: 600 MG/M2, IN 22 HOURS ON DAYS 1 AND 2
     Route: 041

REACTIONS (13)
  - Reticulocytosis [Recovered/Resolved]
  - Red cell fragmentation syndrome [Recovered/Resolved]
  - Disorientation [Recovered/Resolved]
  - Haptoglobin decreased [Recovered/Resolved]
  - Leukocytosis [Unknown]
  - Asthenia [Recovered/Resolved]
  - Atypical haemolytic uraemic syndrome [Unknown]
  - Pain [Unknown]
  - Abdominal distension [Recovered/Resolved]
  - Acute pulmonary oedema [Unknown]
  - Hyperbilirubinaemia [Recovered/Resolved]
  - Haemolytic anaemia [Recovered/Resolved]
  - Acute kidney injury [Unknown]

NARRATIVE: CASE EVENT DATE: 20151015
